FAERS Safety Report 16028617 (Version 2)
Quarter: 2019Q2

REPORT INFORMATION
  Report Type: Spontaneous
  Country: BR (occurrence: BR)
  Receive Date: 20190304
  Receipt Date: 20190426
  Transmission Date: 20190711
  Serious: Yes (Death, Hospitalization)
  Sender: FDA-Public Use
  Company Number: BR-ASTRAZENECA-2019SE34794

PATIENT

DRUGS (1)
  1. SYNAGIS [Suspect]
     Active Substance: PALIVIZUMAB
     Indication: PRODUCT USED FOR UNKNOWN INDICATION
     Dosage: 50.0MG UNKNOWN
     Route: 030
     Dates: start: 20190215

REACTIONS (1)
  - Painful respiration [Fatal]

NARRATIVE: CASE EVENT DATE: 201902
